FAERS Safety Report 14936583 (Version 1)
Quarter: 2018Q2

REPORT INFORMATION
  Report Type: Spontaneous
  Country: US (occurrence: US)
  Receive Date: 20180525
  Receipt Date: 20180525
  Transmission Date: 20180711
  Serious: No
  Sender: FDA-Public Use
  Company Number: US-TEVA-803024ACC

PATIENT
  Sex: Female

DRUGS (1)
  1. CLONIDINE TDS [Suspect]
     Active Substance: CLONIDINE
     Route: 062

REACTIONS (3)
  - Hyperhidrosis [Unknown]
  - Wrong technique in product usage process [Unknown]
  - Product adhesion issue [Unknown]
